FAERS Safety Report 9621814 (Version 5)
Quarter: 2013Q4

REPORT INFORMATION
  Report Type: Report from Study
  Country: FR (occurrence: FR)
  Receive Date: 20131015
  Receipt Date: 20131025
  Transmission Date: 20140711
  Serious: Yes (Death, Hospitalization)
  Sender: FDA-Public Use
  Company Number: FR-B.I. PHARMACEUTICALS,INC./RIDGEFIELD-2013-BI-14675BI

PATIENT
  Age: 62 Year
  Sex: Male
  Weight: 89 kg

DRUGS (17)
  1. BIBW 2992 [Suspect]
     Indication: SQUAMOUS CELL CARCINOMA OF LUNG
     Dosage: 40 MG
     Route: 048
     Dates: start: 20130424
  2. BIBW 2992 [Suspect]
     Dosage: 30 MG
     Route: 048
     Dates: start: 20130606
  3. BIBW 2992 [Suspect]
     Dosage: 30 MG
     Route: 048
     Dates: start: 20130607, end: 20130626
  4. ONDENSETRON [Concomitant]
     Indication: NAUSEA
     Route: 048
     Dates: start: 20120430
  5. PARACETAMOL [Concomitant]
     Indication: PAIN
     Route: 048
     Dates: start: 20130523
  6. LEVETIRACETAM [Concomitant]
     Indication: CEREBRAL DISORDER
     Route: 048
     Dates: start: 20130524
  7. MORPHINE [Concomitant]
     Indication: PAIN
     Route: 048
     Dates: start: 20130524
  8. ECONAZOLE [Concomitant]
     Indication: FUNGAL INFECTION
     Dosage: ROUTE-CUTANEOUS
     Dates: start: 20130525
  9. OXYCONTIN [Concomitant]
     Indication: PAIN
     Route: 048
     Dates: start: 20130528
  10. OXYNORM [Concomitant]
     Indication: PAIN
     Route: 048
     Dates: start: 20130528
  11. HYDROXYZINE [Concomitant]
     Indication: ANXIETY
     Route: 048
     Dates: start: 20130529
  12. METOCLOPRAMIDE [Concomitant]
     Indication: NAUSEA
     Route: 048
     Dates: start: 20130604
  13. DIFLUCORTOLONE [Concomitant]
     Indication: PRURITUS
     Route: 048
     Dates: start: 20130604
  14. MOISTER CREAM [Concomitant]
     Indication: MUCOSAL DRYNESS
     Dosage: ROUTE-CUTANEOUS
     Dates: start: 20130604
  15. ENOXAPARINE [Concomitant]
     Indication: THROMBOSIS PROPHYLAXIS
     Route: 048
     Dates: start: 20130604
  16. MACROGOL [Concomitant]
     Indication: CONSTIPATION
     Route: 048
     Dates: start: 20130608
  17. PREDNISONE [Concomitant]
     Indication: PROPHYLAXIS
     Route: 048
     Dates: start: 20130522

REACTIONS (8)
  - Malignant neoplasm progression [Fatal]
  - Death [Fatal]
  - General physical health deterioration [Recovered/Resolved]
  - General physical health deterioration [Recovered/Resolved]
  - Neoplasm progression [Not Recovered/Not Resolved]
  - Convulsion [Recovered/Resolved]
  - Diarrhoea [Recovered/Resolved]
  - Weight decreased [Not Recovered/Not Resolved]
